FAERS Safety Report 9399873 (Version 2)
Quarter: 2013Q4

REPORT INFORMATION
  Report Type: Report from Study
  Country: BR (occurrence: BR)
  Receive Date: 20130715
  Receipt Date: 20131002
  Transmission Date: 20140711
  Serious: Yes (Death)
  Sender: FDA-Public Use
  Company Number: PHHY2013BR074610

PATIENT
  Age: 87 Year
  Sex: Female

DRUGS (3)
  1. DIOVAN [Suspect]
     Indication: HYPERTENSION
     Dosage: 80 MG, BID
  2. ASPIRINA [Concomitant]
     Indication: ANTICOAGULANT THERAPY
     Dosage: 1 TABLET (100 MG), DAILY
     Route: 048
  3. PURAN T4 [Concomitant]
     Dosage: 1 TABLET (25 UG), DAILY
     Route: 048

REACTIONS (1)
  - Infarction [Fatal]
